FAERS Safety Report 22531762 (Version 1)
Quarter: 2023Q2

REPORT INFORMATION
  Report Type: Spontaneous
  Country: US (occurrence: None)
  Receive Date: 20230606
  Receipt Date: 20230606
  Transmission Date: 20230722
  Serious: Yes (Hospitalization)
  Sender: FDA-Public Use
  Company Number: None

PATIENT
  Age: 79 Year
  Sex: Male
  Weight: 100.79 kg

DRUGS (23)
  1. ABIRATERONE [Suspect]
     Active Substance: ABIRATERONE
     Indication: Prostate cancer
     Dosage: OTHER FREQUENCY : DAILY MORNING ;?
     Route: 048
     Dates: start: 20220505
  2. AMLODIPINE [Concomitant]
  3. UNSPECIFIED INGREDIENT [Concomitant]
     Active Substance: UNSPECIFIED INGREDIENT
  4. ASPIRIN [Concomitant]
  5. CARVEDILOL [Concomitant]
  6. CHOLECALCIFEROL [Concomitant]
  7. CLARITIN [Concomitant]
  8. FENTANYL [Concomitant]
     Active Substance: FENTANYL
  9. ISOSRBIDE [Concomitant]
  10. LEVETIRACETAM [Concomitant]
     Active Substance: LEVETIRACETAM
  11. LOKELMA [Concomitant]
     Active Substance: SODIUM ZIRCONIUM CYCLOSILICATE
  12. MAGNESIUM HYDROXIDE [Concomitant]
     Active Substance: MAGNESIUM HYDROXIDE
  13. MENTHOL [Concomitant]
     Active Substance: MENTHOL
  14. METFORMIN [Concomitant]
  15. MIRTAZAPINE [Concomitant]
  16. MYCOPHENOLIC ACID [Concomitant]
     Active Substance: MYCOPHENOLIC ACID
  17. PANTOPRAZOLE [Concomitant]
  18. PREDNISONE [Concomitant]
  19. ROPINIROLE [Concomitant]
  20. SENNOSIDES-DOCUSATE [Concomitant]
  21. TACROLIMUS [Concomitant]
     Active Substance: TACROLIMUS
  22. TERAZOSIN [Concomitant]
  23. WARFARIN [Concomitant]
     Active Substance: WARFARIN

REACTIONS (1)
  - Hospitalisation [None]
